FAERS Safety Report 6294052-4 (Version None)
Quarter: 2009Q3

REPORT INFORMATION
  Report Type: 
  Country: None (occurrence: None)
  Receive Date: 20090803
  Receipt Date: 20080814
  Transmission Date: 20100115
  Serious: No
  Sender: FDA-Public Use
  Company Number: A0742802A

PATIENT
  Age: 52 Year
  Sex: Male
  Weight: 136 kg

DRUGS (1)
  1. NICORETTE [Suspect]
     Dates: start: 20080802

REACTIONS (4)
  - BLOOD PRESSURE INCREASED [None]
  - FLUID RETENTION [None]
  - SKIN TIGHTNESS [None]
  - SWELLING [None]
